FAERS Safety Report 9192985 (Version 1)
Quarter: 2013Q1

REPORT INFORMATION
  Report Type: Report from Study
  Country: CA (occurrence: CA)
  Receive Date: 20130327
  Receipt Date: 20130327
  Transmission Date: 20140127
  Serious: Yes (Other)
  Sender: FDA-Public Use
  Company Number: CA-JNJFOC-20130305049

PATIENT
  Sex: Female
  Weight: 73 kg

DRUGS (12)
  1. REMICADE [Suspect]
     Indication: CROHN^S DISEASE
     Route: 042
  2. REMICADE [Suspect]
     Indication: CROHN^S DISEASE
     Route: 042
  3. IMURAN [Concomitant]
     Route: 065
  4. PEPCID [Concomitant]
     Indication: GASTRIC DISORDER
     Route: 065
  5. SALOFALK [Concomitant]
     Route: 065
  6. FOSAMAX [Concomitant]
     Indication: BONE DISORDER
     Route: 065
  7. CELEBREX [Concomitant]
     Route: 065
  8. METOPROLOL [Concomitant]
     Route: 065
  9. HYDROCHLOROTHIAZIDE [Concomitant]
     Route: 065
  10. CYMBALTA [Concomitant]
     Indication: STRESS
     Route: 065
  11. BUSCOPAN [Concomitant]
     Indication: HYPOTONIA
     Route: 065
  12. SLOW K [Concomitant]
     Route: 065

REACTIONS (1)
  - Weight increased [Unknown]
